FAERS Safety Report 7082288-4 (Version None)
Quarter: 2010Q4

REPORT INFORMATION
  Report Type: 
  Country: None (occurrence: None)
  Receive Date: 20101104
  Receipt Date: 20101026
  Transmission Date: 20110411
  Serious: Yes (Other)
  Sender: FDA-Public Use
  Company Number: US-BIOGENIDEC-2010BI037047

PATIENT
  Age: 57 Year
  Sex: Female
  Weight: 50 kg

DRUGS (2)
  1. AVONEX [Suspect]
     Indication: MULTIPLE SCLEROSIS
     Route: 030
     Dates: start: 19960101, end: 20030101
  2. AVONEX [Suspect]
     Route: 030
     Dates: start: 20030101

REACTIONS (7)
  - CEREBROVASCULAR ACCIDENT [None]
  - DECREASED APPETITE [None]
  - FATIGUE [None]
  - GAIT DISTURBANCE [None]
  - MALAISE [None]
  - VIITH NERVE PARALYSIS [None]
  - WEIGHT DECREASED [None]
